FAERS Safety Report 9394496 (Version 1)
Quarter: 2013Q3

REPORT INFORMATION
  Report Type: Spontaneous
  Country: JP (occurrence: JP)
  Receive Date: 20130711
  Receipt Date: 20130711
  Transmission Date: 20140515
  Serious: Yes (Other)
  Sender: FDA-Public Use
  Company Number: PHHY2013JP073559

PATIENT
  Sex: Male

DRUGS (8)
  1. NEORAL [Suspect]
     Indication: PROPHYLAXIS AGAINST TRANSPLANT REJECTION
     Dosage: 120 MG/DAY
     Route: 048
  2. NEORAL [Suspect]
     Dosage: 100 MG/DAY
     Route: 048
  3. PREDONINE [Concomitant]
     Indication: PROPHYLAXIS AGAINST TRANSPLANT REJECTION
     Dosage: 5 MG
     Route: 048
  4. CELLCEPT [Concomitant]
     Indication: PROPHYLAXIS AGAINST TRANSPLANT REJECTION
     Dosage: 1500 MG
     Route: 048
  5. MAINTATE [Concomitant]
     Indication: HYPERTENSION
  6. AMLODIN [Concomitant]
     Indication: HYPERTENSION
     Route: 048
  7. BAYASPIRIN [Concomitant]
     Route: 048
  8. NICORETTE GUM [Concomitant]
     Route: 048

REACTIONS (2)
  - Renal disorder [Unknown]
  - Gingival bleeding [Unknown]
